FAERS Safety Report 5662856-4 (Version None)
Quarter: 2008Q1

REPORT INFORMATION
  Report Type: 
  Country: None (occurrence: None)
  Receive Date: 20080311
  Receipt Date: 20080311
  Transmission Date: 20080703
  Serious: Yes (Hospitalization)
  Sender: FDA-Public Use
  Company Number: None

PATIENT
  Sex: Male
  Weight: 77.5 kg

DRUGS (6)
  1. CISPLATIN [Suspect]
     Dosage: 200 MG
     Dates: end: 20080225
  2. ACETAMINOPHEN-CODEINE SOLUTION [Concomitant]
  3. ASPIRIN [Concomitant]
  4. CLARITIN [Concomitant]
  5. HYTRIN [Concomitant]
  6. LIPITOR [Concomitant]

REACTIONS (8)
  - BLOOD CREATININE INCREASED [None]
  - BLOOD POTASSIUM ABNORMAL [None]
  - BLOOD SODIUM ABNORMAL [None]
  - BLOOD UREA INCREASED [None]
  - DEHYDRATION [None]
  - ELECTROLYTE IMBALANCE [None]
  - HYPOTENSION [None]
  - ORAL INTAKE REDUCED [None]
